FAERS Safety Report 4280283-1 (Version None)
Quarter: 2004Q1

REPORT INFORMATION
  Report Type: 
  Country: None (occurrence: None)
  Receive Date: 20040126
  Receipt Date: 20040113
  Transmission Date: 20041129
  Serious: Yes (Hospitalization)
  Sender: FDA-Public Use
  Company Number: NL-JNJFOC-20031202483

PATIENT
  Age: 29 Year
  Sex: Female

DRUGS (3)
  1. REMICADE [Suspect]
     Indication: CROHN'S DISEASE
     Dosage: INTRAVENOUS
     Route: 042
  2. MICROGYNAN 30 (EUGYNON) [Concomitant]
  3. PARACETAMOL [Concomitant]

REACTIONS (2)
  - FISTULA [None]
  - STUPOR [None]
